FAERS Safety Report 10076251 (Version 2)
Quarter: 2014Q3

REPORT INFORMATION
  Report Type: Spontaneous
  Country: US (occurrence: None)
  Receive Date: 20140410
  Receipt Date: 20140905
  Transmission Date: 20150326
  Serious: Yes (Death, Other)
  Sender: FDA-Public Use
  Company Number: UTC-046818

PATIENT
  Age: 42 Year
  Sex: Female

DRUGS (1)
  1. REMODULIN [Suspect]
     Active Substance: TREPROSTINIL
     Indication: COR PULMONALE CHRONIC
     Dosage: 0.106 UG/KG, 1 IN 1 MIN
     Route: 058
     Dates: start: 20030608

REACTIONS (3)
  - Uterine mass [None]
  - Cor pulmonale chronic [None]
  - Disease progression [None]
